FAERS Safety Report 5363246-4 (Version None)
Quarter: 2007Q2

REPORT INFORMATION
  Report Type: 
  Country: None (occurrence: None)
  Receive Date: 20070618
  Receipt Date: 20070618
  Transmission Date: 20071010
  Serious: Yes (Other)
  Sender: FDA-Public Use
  Company Number: None

PATIENT
  Age: 50 Year
  Sex: Female

DRUGS (31)
  1. DESFLURANE [Suspect]
     Dates: start: 20050622, end: 20050622
  2. LEVOFLOXACIN [Suspect]
  3. INSULIN [Concomitant]
  4. TYLENOL [Concomitant]
  5. MORPHINE [Concomitant]
  6. ZOFRAN [Concomitant]
  7. SINGULAIR [Concomitant]
  8. ALBUTEROL [Concomitant]
  9. ATROVENT [Concomitant]
  10. NITROGLYCERIN [Concomitant]
  11. PLAVIX [Concomitant]
  12. ASPIRIN [Concomitant]
  13. SOLU-MEDROL [Concomitant]
  14. LIPITOR [Concomitant]
  15. LOVENOX [Concomitant]
  16. ATENOLOL [Concomitant]
  17. LEVOFLOXACIN [Concomitant]
  18. ROCEPHIN [Concomitant]
  19. CEFUROXIME [Concomitant]
  20. ZELNORM [Concomitant]
  21. TRICOR [Concomitant]
  22. CELEBREX [Concomitant]
  23. VERAPAMIL [Concomitant]
  24. TIGAN [Concomitant]
  25. PLAVIX [Concomitant]
  26. INSULIN [Concomitant]
  27. VERELAN [Concomitant]
  28. SINGULAIR [Concomitant]
  29. ZOCOR [Concomitant]
  30. REGLAN [Concomitant]
  31. LEVAQUIN [Concomitant]

REACTIONS (3)
  - FAILURE TO THRIVE [None]
  - HEPATITIS CHOLESTATIC [None]
  - LIVER INJURY [None]
